FAERS Safety Report 8274081-1 (Version None)
Quarter: 2012Q2

REPORT INFORMATION
  Report Type: 
  Country: None (occurrence: None)
  Receive Date: 20120406
  Receipt Date: 20120406
  Transmission Date: 20120825
  Serious: Yes (Other)
  Sender: FDA-Public Use
  Company Number: None

PATIENT
  Age: 5 Decade
  Sex: Female
  Weight: 63.05 kg

DRUGS (2)
  1. GABAPENTIN [Suspect]
     Indication: INTERVERTEBRAL DISC PROTRUSION
     Dosage: 300MG 1 QD PO
     Route: 048
     Dates: start: 20120101, end: 20120201
  2. GABAPENTIN [Suspect]
     Indication: NEURALGIA
     Dosage: 300MG 1 QD PO
     Route: 048
     Dates: start: 20120101, end: 20120201

REACTIONS (4)
  - MONOCYTE PERCENTAGE INCREASED [None]
  - WHITE BLOOD CELL COUNT DECREASED [None]
  - LYMPHOCYTE PERCENTAGE INCREASED [None]
  - NEUTROPHIL PERCENTAGE DECREASED [None]
